FAERS Safety Report 12055624 (Version 1)
Quarter: 2016Q1

REPORT INFORMATION
  Report Type: Spontaneous
  Country: IT (occurrence: IT)
  Receive Date: 20160209
  Receipt Date: 20160209
  Transmission Date: 20160526
  Serious: Yes (Death, Other)
  Sender: FDA-Public Use
  Company Number: US-BAXTER-2007BH001921

PATIENT
  Age: 45 Year
  Sex: Male

DRUGS (3)
  1. HEMOFIL M [Suspect]
     Active Substance: ANTIHEMOPHILIC FACTOR HUMAN
     Indication: FACTOR VIII DEFICIENCY
     Dosage: UNK
     Route: 065
     Dates: start: 1978, end: 1980
  2. KOATE [Suspect]
     Active Substance: ANTIHEMOPHILIC FACTOR HUMAN
     Indication: FACTOR VIII DEFICIENCY
     Dosage: UNK
     Route: 065
     Dates: start: 1984, end: 1991
  3. KRYOBULIN [Suspect]
     Active Substance: HUMAN COAGULATION FACTOR VIII/VON WILLEBRAND FACTOR COMPLEX
     Indication: FACTOR VIII DEFICIENCY
     Dosage: UNK
     Route: 065
     Dates: start: 1980, end: 1985

REACTIONS (5)
  - Death [Fatal]
  - HIV infection [Unknown]
  - Hepatitis C [Unknown]
  - Hepatitis B [Unknown]
  - Kaposi^s sarcoma [Unknown]

NARRATIVE: CASE EVENT DATE: 1986
